FAERS Safety Report 24760691 (Version 3)
Quarter: 2025Q2

REPORT INFORMATION
  Report Type: Spontaneous
  Country: IN (occurrence: IN)
  Receive Date: 20241220
  Receipt Date: 20250620
  Transmission Date: 20250716
  Serious: Yes (Hospitalization, Other)
  Sender: PFIZER
  Company Number: IN-PFIZER INC-PV202400164173

PATIENT
  Age: 57 Year
  Sex: Female
  Weight: 55.6 kg

DRUGS (1)
  1. LORLATINIB [Suspect]
     Active Substance: LORLATINIB
     Indication: Lung adenocarcinoma
     Dosage: 100 MG, 1X/DAY
     Route: 048

REACTIONS (6)
  - Fall [Unknown]
  - Injury [Unknown]
  - Metastases to central nervous system [Unknown]
  - Lipids abnormal [Unknown]
  - Blood creatine increased [Unknown]
  - Blood glucose increased [Unknown]

NARRATIVE: CASE EVENT DATE: 20250101
